FAERS Safety Report 19394555 (Version 8)
Quarter: 2022Q1

REPORT INFORMATION
  Report Type: Report from Study
  Country: US (occurrence: US)
  Receive Date: 20210609
  Receipt Date: 20220311
  Transmission Date: 20220423
  Serious: No
  Sender: FDA-Public Use
  Company Number: NVSC2021US120918

PATIENT
  Sex: Female

DRUGS (1)
  1. ENTRESTO [Suspect]
     Active Substance: SACUBITRIL\VALSARTAN
     Indication: Product used for unknown indication
     Dosage: UNK, BID
     Route: 048

REACTIONS (10)
  - Cough [Unknown]
  - Hypersensitivity [Not Recovered/Not Resolved]
  - Dizziness [Unknown]
  - Memory impairment [Unknown]
  - Feeling abnormal [Unknown]
  - Overdose [Unknown]
  - Inappropriate schedule of product administration [Unknown]
  - Fatigue [Unknown]
  - Vitamin B12 decreased [Unknown]
  - Sleep apnoea syndrome [Unknown]
